FAERS Safety Report 16970166 (Version 1)
Quarter: 2019Q4

REPORT INFORMATION
  Report Type: Spontaneous
  Country: FR (occurrence: FR)
  Receive Date: 20191029
  Receipt Date: 20191029
  Transmission Date: 20200122
  Serious: Yes (Other)
  Sender: FDA-Public Use
  Company Number: NVSC2019FR016962

PATIENT
  Age: 8 Year
  Sex: Male

DRUGS (4)
  1. RITALINE [Suspect]
     Active Substance: METHYLPHENIDATE HYDROCHLORIDE
     Indication: ATTENTION DEFICIT/HYPERACTIVITY DISORDER
     Dosage: 10 MG, BID (IN THE MORNING AND AFTERNOON)
     Route: 065
     Dates: start: 201501, end: 201612
  2. RITALINE [Suspect]
     Active Substance: METHYLPHENIDATE HYDROCHLORIDE
     Dosage: UNK
     Route: 065
  3. QUASYM [Suspect]
     Active Substance: METHYLPHENIDATE HYDROCHLORIDE
     Dosage: UNK (PROGRESSIVELY AND ONLY DURING SCHOOL TIME, MORNING AND AFTERNOON, NEVER DURING THE WEEKEND)
     Route: 065
  4. QUASYM [Suspect]
     Active Substance: METHYLPHENIDATE HYDROCHLORIDE
     Indication: ATTENTION DEFICIT/HYPERACTIVITY DISORDER
     Dosage: 20 MG, QD (IN THE MORNING)
     Route: 065

REACTIONS (4)
  - Anger [Unknown]
  - Tic [Unknown]
  - Drug ineffective [Unknown]
  - Tourette^s disorder [Unknown]

NARRATIVE: CASE EVENT DATE: 201606
